FAERS Safety Report 11198904 (Version 1)
Quarter: 2015Q2

REPORT INFORMATION
  Report Type: Spontaneous
  Country: SI (occurrence: SI)
  Receive Date: 20150618
  Receipt Date: 20150618
  Transmission Date: 20150821
  Serious: Yes (Hospitalization)
  Sender: FDA-Public Use
  Company Number: SI-SA-2015SA083237

PATIENT
  Age: 50 Year
  Sex: Male
  Weight: 69 kg

DRUGS (8)
  1. LEVOTHYROXINE [Concomitant]
     Active Substance: LEVOTHYROXINE
     Dates: start: 2009
  2. RAMIPRIL. [Concomitant]
     Active Substance: RAMIPRIL
     Dates: start: 2003
  3. LANTHANUM CARBONATE. [Concomitant]
     Active Substance: LANTHANUM CARBONATE
     Dates: start: 201505
  4. SODIUM BICARBONATE. [Concomitant]
     Active Substance: SODIUM BICARBONATE
     Dates: start: 201505
  5. ALLOPURINOL. [Concomitant]
     Active Substance: ALLOPURINOL
     Dates: start: 2011
  6. SALMETEROL/FLUTICASONE PROPIONATE [Concomitant]
     Dosage: 50 MCG/500 MCG ONE INH PER DAY
     Dates: start: 2003
  7. FABRAZYME [Suspect]
     Active Substance: AGALSIDASE BETA
     Indication: FABRY^S DISEASE
     Route: 041
     Dates: start: 20031120
  8. LORATADINE. [Concomitant]
     Active Substance: LORATADINE
     Dates: start: 2003

REACTIONS (1)
  - Chronic kidney disease [Recovered/Resolved]
